FAERS Safety Report 5006225-9 (Version None)
Quarter: 2006Q1

REPORT INFORMATION
  Report Type: 
  Country: None (occurrence: None)
  Receive Date: 20060327
  Receipt Date: 20051209
  Transmission Date: 20060701
  Serious: No
  Sender: FDA-Public Use
  Company Number: 219976

PATIENT
  Age: 63 Year
  Sex: Male

DRUGS (6)
  1. AVASTIN [Suspect]
     Indication: COLORECTAL CANCER
     Dosage: 5 MG/KG, Q2W
     Dates: start: 20050712
  2. 5-FLUROURACIL (FLUROURACIL) [Concomitant]
  3. LEUCOVORIN CALCIUM [Concomitant]
  4. IRINOTECAN HCL [Concomitant]
  5. ALOXI [Concomitant]
  6. DECADRON SRC [Concomitant]

REACTIONS (1)
  - NEUROPATHY [None]
